FAERS Safety Report 6671921-4 (Version None)
Quarter: 2010Q2

REPORT INFORMATION
  Report Type: 
  Country: None (occurrence: None)
  Receive Date: 20100407
  Receipt Date: 20070219
  Transmission Date: 20101027
  Serious: Yes (Other)
  Sender: FDA-Public Use
  Company Number: JP-PFIZER INC-2007013767

PATIENT
  Age: 35 Year
  Sex: Female

DRUGS (1)
  1. CORTRIL [Suspect]
     Route: 048

REACTIONS (2)
  - ADRENALECTOMY [None]
  - AMENORRHOEA [None]
